FAERS Safety Report 11717771 (Version 2)
Quarter: 2015Q4

REPORT INFORMATION
  Report Type: Spontaneous
  Country: US (occurrence: US)
  Receive Date: 20151110
  Receipt Date: 20151223
  Transmission Date: 20160304
  Serious: Yes (Hospitalization, Other)
  Sender: FDA-Public Use
  Company Number: US-009507513-1511USA001781

PATIENT
  Age: 21 Year
  Sex: Female

DRUGS (1)
  1. NEXPLANON [Suspect]
     Active Substance: ETONOGESTREL
     Indication: CONTRACEPTION
     Dosage: DOSE/FREQUENCY: 68 MG ETONOGESTREL/ONE
     Route: 059

REACTIONS (3)
  - Pain [Recovering/Resolving]
  - Cholecystectomy [Recovering/Resolving]
  - Hepatic function abnormal [Recovering/Resolving]
